FAERS Safety Report 5311267-X (Version None)
Quarter: 2007Q2

REPORT INFORMATION
  Report Type: 
  Country: None (occurrence: None)
  Receive Date: 20070430
  Receipt Date: 20070426
  Transmission Date: 20071010
  Serious: Yes (Other)
  Sender: FDA-Public Use
  Company Number: US-GENENTECH-228714

PATIENT
  Sex: Female
  Weight: 79.818 kg

DRUGS (1)
  1. XOLAIR [Suspect]
     Indication: DRUG USE FOR UNKNOWN INDICATION
     Dosage: 150 MG, UNK
     Route: 030
     Dates: start: 20060418

REACTIONS (1)
  - RASH MACULO-PAPULAR [None]
